FAERS Safety Report 18762301 (Version 2)
Quarter: 2021Q2

REPORT INFORMATION
  Report Type: Other
  Country: CA (occurrence: CA)
  Receive Date: 20210120
  Receipt Date: 20210526
  Transmission Date: 20210717
  Serious: Yes (Death, Hospitalization)
  Sender: FDA-Public Use
  Company Number: CA-TOLMAR, INC.-21CA024961

PATIENT
  Age: 77 Year
  Sex: Male

DRUGS (3)
  1. ELIGARD [Suspect]
     Active Substance: LEUPROLIDE ACETATE
     Indication: PROSTATE CANCER
     Dosage: 30 MG, Q 4 MONTH
     Route: 058
     Dates: start: 20200928
  2. ELIGARD [Suspect]
     Active Substance: LEUPROLIDE ACETATE
     Dosage: 30 MG, Q 4 MONTH
     Route: 058
     Dates: start: 20181128
  3. ELIGARD [Suspect]
     Active Substance: LEUPROLIDE ACETATE
     Dosage: 30 MG, Q 4 MONTH
     Route: 058
     Dates: start: 20210118

REACTIONS (3)
  - Fatigue [Unknown]
  - Liver disorder [Unknown]
  - Prostate cancer metastatic [Fatal]

NARRATIVE: CASE EVENT DATE: 20201221
